FAERS Safety Report 7237194-9 (Version None)
Quarter: 2011Q1

REPORT INFORMATION
  Report Type: 
  Country: None (occurrence: None)
  Receive Date: 20110121
  Receipt Date: 20110109
  Transmission Date: 20110831
  Serious: Yes (Hospitalization)
  Sender: FDA-Public Use
  Company Number: US-SOLVAY-00211000279

PATIENT
  Age: 697 Month
  Sex: Male
  Weight: 100 kg

DRUGS (16)
  1. OMEPRAZOLE [Concomitant]
     Indication: GASTROOESOPHAGEAL REFLUX DISEASE
     Dosage: DAILY DOSE: 20 MILLIGRAM(S), DURATION 3 YEARS
     Route: 065
  2. AMBIEN [Concomitant]
     Indication: INSOMNIA
     Dosage: DAILY DOSE: 10 MILLIGRAM(S)
     Route: 065
     Dates: end: 20101113
  3. ANTARA (MICRONIZED) [Concomitant]
     Indication: BLOOD TRIGLYCERIDES INCREASED
     Dosage: DAILY DOSE: 86 MILLIGRAM(S), DURATION 3 YEARS
     Route: 065
  4. MUSE [Concomitant]
     Indication: ERECTILE DYSFUNCTION
     Dosage: DAILY DOSE:  UNKNOWN, FREQUENCY: AS NEEDED
     Route: 065
     Dates: start: 20100101
  5. RETIN-A [Concomitant]
     Indication: ACNE
     Dosage: DAILY DOSE:  UNKNOWN
     Route: 065
  6. SIMVASTATIN [Concomitant]
     Indication: BLOOD CHOLESTEROL INCREASED
     Dosage: DAILY DOSE: 40 MILLIGRAM(S), DURATION 3 YEARS
     Route: 065
  7. ANDROGEL [Suspect]
     Indication: BLOOD TESTOSTERONE DECREASED
     Dosage: DAILY DOSE: 5 GRAM(S)
     Route: 062
     Dates: start: 20100908, end: 20101103
  8. CAPEX [Concomitant]
     Indication: DANDRUFF
     Dosage: DAILY DOSE:  UNKNOWN
     Route: 065
  9. ENALAPRIL [Concomitant]
     Indication: HYPERTENSION
     Dosage: DAILY DOSE: 20 MILLIGRAM(S), DURATION 3 YEARS
     Route: 065
  10. ANDROGEL [Suspect]
     Dosage: DAILY DOSE: 7.5 GRAM(S)
     Route: 062
     Dates: start: 20101103, end: 20101113
  11. CIALIS [Concomitant]
     Indication: ERECTILE DYSFUNCTION
     Dosage: DAILY DOSE: 20 MILLIGRAM(S), FREQUENCY: AS NEEDED
     Route: 065
  12. HYDROCHLOROTHIAZIDE [Concomitant]
     Indication: HYPERTENSION
     Dosage: DAILY DOSE: 12.5 MILLIGRAM(S), DURATION 3 YEARS
     Route: 065
  13. PREDNISONE [Concomitant]
     Indication: EAR DISORDER
     Dosage: DAILY DOSE:  UNKNOWN
     Route: 065
     Dates: start: 20070101
  14. FLUTICASONE NASAL SPRAY [Concomitant]
     Indication: HYPERSENSITIVITY
     Dosage: DAILY DOSE:  UNKNOWN, DURATION 4 YEARS
     Route: 045
  15. COREG [Concomitant]
     Indication: HYPERTENSION
     Dosage: DAILY DOSE: 20 MILLIGRAM(S), DURATION 3 YEARS
     Route: 065
  16. LEXAPRO [Concomitant]
     Indication: DEPRESSION
     Dosage: DAILY DOSE: 10 MILLIGRAM(S)
     Route: 065
     Dates: end: 20101113

REACTIONS (9)
  - HALLUCINATION [None]
  - PARANOIA [None]
  - PANIC ATTACK [None]
  - ANXIETY [None]
  - PHYSICAL ASSAULT [None]
  - ANGER [None]
  - BLOOD TESTOSTERONE DECREASED [None]
  - AMNESIA [None]
  - AGGRESSION [None]
